FAERS Safety Report 21687201 (Version 2)
Quarter: 2022Q4

REPORT INFORMATION
  Report Type: Spontaneous
  Country: FR (occurrence: FR)
  Receive Date: 20221206
  Receipt Date: 20221209
  Transmission Date: 20230113
  Serious: Yes (Death, Other)
  Sender: FDA-Public Use
  Company Number: FR-GLAXOSMITHKLINE-FR2022EME180513

PATIENT

DRUGS (1)
  1. BELANTAMAB MAFODOTIN [Suspect]
     Active Substance: BELANTAMAB MAFODOTIN
     Indication: Plasma cell myeloma
     Dosage: 250 MG, WE (250 MG/DOSE 1 DOSE/WEEK 1 WEEK(S)/CYCLE)
     Dates: end: 20210202

REACTIONS (2)
  - Plasma cell myeloma [Fatal]
  - General physical health deterioration [Unknown]
